FAERS Safety Report 10287067 (Version 2)
Quarter: 2014Q3

REPORT INFORMATION
  Report Type: Spontaneous
  Country: US (occurrence: US)
  Receive Date: 20140709
  Receipt Date: 20140709
  Transmission Date: 20150326
  Serious: Yes (Hospitalization, Other)
  Sender: FDA-Public Use
  Company Number: US-009507513-2010SP038548

PATIENT
  Sex: Female
  Weight: 74.84 kg

DRUGS (1)
  1. NUVARING [Suspect]
     Active Substance: ETHINYL ESTRADIOL\ETONOGESTREL
     Indication: CONTRACEPTION
     Route: 067
     Dates: start: 200706, end: 20090105

REACTIONS (6)
  - Cholecystitis chronic [Recovered/Resolved]
  - Cerebrovascular accident [Unknown]
  - Transient ischaemic attack [Unknown]
  - Substance use [Unknown]
  - Umbilical hernia [Unknown]
  - Blood cholesterol increased [Unknown]

NARRATIVE: CASE EVENT DATE: 200901
